FAERS Safety Report 13253035 (Version 1)
Quarter: 2017Q1

REPORT INFORMATION
  Report Type: Spontaneous
  Country: CZ (occurrence: CZ)
  Receive Date: 20170220
  Receipt Date: 20170220
  Transmission Date: 20170428
  Serious: Yes (Other)
  Sender: FDA-Public Use
  Company Number: CZ-ROCHE-1893956

PATIENT
  Sex: Female
  Weight: 60 kg

DRUGS (22)
  1. XOLAIR [Suspect]
     Active Substance: OMALIZUMAB
     Route: 058
  2. VENTOLIN [Concomitant]
     Active Substance: ALBUTEROL SULFATE
     Indication: PRODUCT USED FOR UNKNOWN INDICATION
     Dosage: 4 DF, QD
     Route: 065
  3. VENTOLIN [Concomitant]
     Active Substance: ALBUTEROL SULFATE
     Dosage: 1 DF, TID
     Route: 065
  4. AERIUS (CZECH REPUBLIC) [Concomitant]
     Indication: PRODUCT USED FOR UNKNOWN INDICATION
     Dosage: UNK
     Route: 065
  5. XOLAIR [Suspect]
     Active Substance: OMALIZUMAB
     Indication: PRODUCT USED FOR UNKNOWN INDICATION
     Route: 058
     Dates: start: 20090611
  6. XOLAIR [Suspect]
     Active Substance: OMALIZUMAB
     Dosage: UNK (EVERY 3 TO 4 WEEKS)
     Route: 065
     Dates: start: 201505
  7. VENTOLIN [Concomitant]
     Active Substance: ALBUTEROL SULFATE
     Dosage: UNK, TIW
     Route: 065
     Dates: start: 200912
  8. PHOSTAL [Concomitant]
     Indication: MITE ALLERGY
     Dosage: UNK
     Route: 065
  9. XOLAIR [Suspect]
     Active Substance: OMALIZUMAB
     Route: 058
  10. SYMBICORT [Concomitant]
     Active Substance: BUDESONIDE\FORMOTEROL FUMARATE DIHYDRATE
     Dosage: 1 DF, BID
     Route: 065
  11. SINGULAIR [Concomitant]
     Active Substance: MONTELUKAST SODIUM
     Indication: PRODUCT USED FOR UNKNOWN INDICATION
     Dosage: 10 MG, UNK
     Route: 065
     Dates: start: 200912
  12. NOLPAZA [Concomitant]
     Active Substance: PANTOPRAZOLE SODIUM
     Indication: GASTROOESOPHAGEAL REFLUX DISEASE
     Dosage: UNK
     Route: 065
  13. PREPULSID [Concomitant]
     Active Substance: CISAPRIDE
     Indication: GASTROOESOPHAGEAL REFLUX DISEASE
     Dosage: UNK
     Route: 065
  14. XOLAIR [Suspect]
     Active Substance: OMALIZUMAB
     Dosage: UNK (EVERY 3 TO 4 WEEKS)
     Route: 058
     Dates: start: 201509
  15. SYMBICORT [Concomitant]
     Active Substance: BUDESONIDE\FORMOTEROL FUMARATE DIHYDRATE
     Indication: PRODUCT USED FOR UNKNOWN INDICATION
     Dosage: 1 DF, TID
     Route: 065
  16. VENTOLIN [Concomitant]
     Active Substance: ALBUTEROL SULFATE
     Dosage: 2 UNK, UNK @ INTO 24 HOURS)
     Route: 065
  17. XOLAIR [Suspect]
     Active Substance: OMALIZUMAB
     Route: 058
  18. THEOPHYLLIN [Concomitant]
     Active Substance: THEOPHYLLINE ANHYDROUS
     Indication: PRODUCT USED FOR UNKNOWN INDICATION
     Dosage: UNK
     Route: 065
  19. VENTOLIN [Concomitant]
     Active Substance: ALBUTEROL SULFATE
     Dosage: 1 DF, QW
     Route: 065
     Dates: start: 201509
  20. SYNTOPHYLLIN (AMINOPHYLLINE) [Concomitant]
     Active Substance: AMINOPHYLLINE
     Indication: PRODUCT USED FOR UNKNOWN INDICATION
     Dosage: UNK
     Route: 065
     Dates: start: 200902
  21. PREDNISON [Concomitant]
     Active Substance: PREDNISONE
     Indication: PRODUCT USED FOR UNKNOWN INDICATION
     Dosage: UNK
     Route: 065
     Dates: start: 200902
  22. FRAXIPARINE [Concomitant]
     Active Substance: NADROPARIN CALCIUM

REACTIONS (24)
  - Face oedema [Unknown]
  - Gastrooesophageal reflux disease [Not Recovered/Not Resolved]
  - Alopecia [Unknown]
  - Fatigue [Unknown]
  - Pruritus [Unknown]
  - Spinal anaesthesia [Recovering/Resolving]
  - Tetany [Unknown]
  - Hypochromic anaemia [Unknown]
  - Sleep disorder [Unknown]
  - Erythema [Unknown]
  - Nasopharyngitis [Unknown]
  - Dyspepsia [Unknown]
  - Hypomagnesaemia [Recovering/Resolving]
  - Seasonal allergy [Unknown]
  - Muscle twitching [Unknown]
  - Spinal pain [Unknown]
  - Respiratory tract infection [Unknown]
  - Maternal exposure during pregnancy [Unknown]
  - Weight increased [Recovered/Resolved with Sequelae]
  - Seizure [Unknown]
  - Dyspnoea exertional [Not Recovered/Not Resolved]
  - Myalgia [Unknown]
  - Rash [Unknown]
  - Headache [Recovering/Resolving]

NARRATIVE: CASE EVENT DATE: 201509
